FAERS Safety Report 6541990-0 (Version None)
Quarter: 2010Q1

REPORT INFORMATION
  Report Type: 
  Country: None (occurrence: None)
  Receive Date: 20100119
  Receipt Date: 20100106
  Transmission Date: 20100710
  Serious: Yes (Other)
  Sender: FDA-Public Use
  Company Number: JP-ROCHE-679600

PATIENT
  Age: 50 Year
  Sex: Male

DRUGS (4)
  1. AVASTIN [Suspect]
     Indication: ANAL CANCER
     Route: 041
  2. 5-FU [Concomitant]
     Route: 041
  3. ELPLAT [Concomitant]
     Route: 041
  4. LEVOFOLINATE [Concomitant]
     Route: 041

REACTIONS (1)
  - HYPOAESTHESIA [None]
